FAERS Safety Report 4833760-6 (Version None)
Quarter: 2005Q4

REPORT INFORMATION
  Report Type: 
  Country: None (occurrence: None)
  Receive Date: 20051118
  Receipt Date: 20051118
  Transmission Date: 20060501
  Serious: Yes (Death)
  Sender: FDA-Public Use
  Company Number: None

PATIENT
  Sex: Male
  Weight: 95 kg

DRUGS (3)
  1. BUSULFAN [Suspect]
     Indication: ACUTE LEUKAEMIA
     Dosage: 369 MG  DAILY  IV DRIP
     Route: 041
     Dates: start: 20051014, end: 20051017
  2. FLUDARABINE [Suspect]
     Dosage: 53 MG  DAILY  IV DRIP
     Route: 041
     Dates: start: 20051013, end: 20051017
  3. CAMPATH [Concomitant]

REACTIONS (3)
  - ACUTE MYELOID LEUKAEMIA [None]
  - CONDITION AGGRAVATED [None]
  - PNEUMONIA KLEBSIELLA [None]
